FAERS Safety Report 20819276 (Version 1)
Quarter: 2022Q2

REPORT INFORMATION
  Report Type: Spontaneous
  Country: US (occurrence: US)
  Receive Date: 20220512
  Receipt Date: 20220512
  Transmission Date: 20220721
  Serious: Yes (Hospitalization, Disabling)
  Sender: FDA-Public Use
  Company Number: US-TEVA-2022-US-2034879

PATIENT
  Age: 10 Year
  Sex: Male

DRUGS (3)
  1. WARFARIN [Suspect]
     Active Substance: WARFARIN
     Indication: Anticoagulant therapy
     Route: 065
  2. DIPYRIDAMOLE [Suspect]
     Active Substance: DIPYRIDAMOLE
     Indication: Anticoagulant therapy
     Route: 065
  3. ASPIRIN [Suspect]
     Active Substance: ASPIRIN
     Indication: Anticoagulant therapy
     Route: 065

REACTIONS (1)
  - Cerebral haemorrhage [Not Recovered/Not Resolved]
